FAERS Safety Report 7235512-9 (Version None)
Quarter: 2011Q1

REPORT INFORMATION
  Report Type: 
  Country: None (occurrence: None)
  Receive Date: 20110120
  Receipt Date: 20110107
  Transmission Date: 20110831
  Serious: Yes (Hospitalization, Other)
  Sender: FDA-Public Use
  Company Number: US-ELI_LILLY_AND_COMPANY-US201010001706

PATIENT
  Sex: Female
  Weight: 103.86 kg

DRUGS (8)
  1. ADCIRCA [Suspect]
     Indication: PULMONARY HYPERTENSION
     Dosage: 20 MG, 2/D
     Route: 048
     Dates: end: 20100910
  2. AMIODARONE [Concomitant]
  3. ANTIHYPERTENSIVES [Concomitant]
  4. LASIX [Concomitant]
  5. BUSPAR [Concomitant]
  6. ZOCOR [Concomitant]
  7. DEPAKOTE [Concomitant]
  8. PRILOSEC [Concomitant]

REACTIONS (4)
  - UNRESPONSIVE TO STIMULI [None]
  - HYPOTENSION [None]
  - LOSS OF CONSCIOUSNESS [None]
  - CONVULSION [None]
